FAERS Safety Report 14340318 (Version 2)
Quarter: 2018Q1

REPORT INFORMATION
  Report Type: Spontaneous
  Country: IN (occurrence: IN)
  Receive Date: 20180101
  Receipt Date: 20180109
  Transmission Date: 20180509
  Serious: Yes (Death, Other)
  Sender: FDA-Public Use
  Company Number: IN-ABBVIE-17S-078-2208119-00

PATIENT
  Age: 5 Day
  Sex: Male
  Weight: 1.2 kg

DRUGS (7)
  1. AMPI/ GENTA [Concomitant]
     Indication: LOW BIRTH WEIGHT BABY
  2. AMPI/ GENTA [Concomitant]
     Indication: ACUTE RESPIRATORY DISTRESS SYNDROME
  3. SURVANTA [Suspect]
     Active Substance: BERACTANT
     Indication: ACUTE RESPIRATORY DISTRESS SYNDROME
     Route: 039
     Dates: start: 20170601
  4. PIPZO/ FLUOON [Concomitant]
     Indication: LOW BIRTH WEIGHT BABY
  5. AMPI/ GENTA [Concomitant]
     Indication: PREMATURE BABY
     Route: 042
     Dates: start: 20170531, end: 20170605
  6. PIPZO/ FLUOON [Concomitant]
     Indication: PREMATURE BABY
     Route: 042
     Dates: start: 20170531, end: 20170605
  7. PIPZO/ FLUOON [Concomitant]
     Indication: ACUTE RESPIRATORY DISTRESS SYNDROME

REACTIONS (1)
  - Pulmonary haemorrhage [Fatal]

NARRATIVE: CASE EVENT DATE: 20170605
